FAERS Safety Report 6464972-6 (Version None)
Quarter: 2009Q4

REPORT INFORMATION
  Report Type: 
  Country: None (occurrence: None)
  Receive Date: 20091124
  Receipt Date: 20091111
  Transmission Date: 20100525
  Serious: Yes (Other)
  Sender: FDA-Public Use
  Company Number: 8054559

PATIENT
  Age: 32 Year
  Sex: Female
  Weight: 61.3 kg

DRUGS (1)
  1. CIMZIA [Suspect]
     Indication: CROHN'S DISEASE
     Dosage: 400 MG / SC
     Route: 058
     Dates: start: 20081230

REACTIONS (1)
  - FISTULA REPAIR [None]
